FAERS Safety Report 11745694 (Version 1)
Quarter: 2015Q4

REPORT INFORMATION
  Report Type: Spontaneous
  Country: JP (occurrence: JP)
  Receive Date: 20151117
  Receipt Date: 20151117
  Transmission Date: 20160304
  Serious: Yes (Other)
  Sender: FDA-Public Use
  Company Number: JP-RANBAXY-2015RR-92040

PATIENT

DRUGS (2)
  1. MOXIFLOXACIN. [Suspect]
     Active Substance: MOXIFLOXACIN
     Indication: ALLERGY TEST
     Dosage: 200 MG,1/2 OF THE NORMAL DOSE
     Route: 048
  2. CIPROFLOXACIN. [Suspect]
     Active Substance: CIPROFLOXACIN
     Indication: ALLERGY TEST
     Dosage: 50 MG, 1/4 OF THE NORMAL DOSE
     Route: 065

REACTIONS (4)
  - Type I hypersensitivity [Unknown]
  - Drug cross-reactivity [Unknown]
  - Urticaria [Unknown]
  - Anaphylactic reaction [Unknown]
